FAERS Safety Report 17679251 (Version 2)
Quarter: 2020Q2

REPORT INFORMATION
  Report Type: Spontaneous
  Country: US (occurrence: US)
  Receive Date: 20200417
  Receipt Date: 20200511
  Transmission Date: 20200714
  Serious: Yes (Death, Hospitalization, Other)
  Sender: FDA-Public Use
  Company Number: US-PFIZER INC-2020158257

PATIENT
  Age: 66 Year
  Sex: Female

DRUGS (5)
  1. CALCIUM CARBONATE. [Concomitant]
     Active Substance: CALCIUM CARBONATE
     Dosage: 1200 MG, DAILY
     Route: 048
     Dates: end: 20191021
  2. FEMARA [Concomitant]
     Active Substance: LETROZOLE
     Dosage: 2.5 MG, DAILY
     Route: 048
  3. IBRANCE [Suspect]
     Active Substance: PALBOCICLIB
     Indication: BREAST CANCER METASTATIC
     Dosage: 75 MG, CYCLIC (DAILY FOR 21 DAYS, THEN OFF FOR 7 DAYS EVERY 28 DAYS)
     Route: 048
     Dates: start: 20190308, end: 20200331
  4. CRESTOR [Concomitant]
     Active Substance: ROSUVASTATIN CALCIUM
     Dosage: 10 MG, ONCE DAILY (EVERY NIGHT AT BEDTIME)
     Route: 048
  5. XGEVA [Concomitant]
     Active Substance: DENOSUMAB
     Indication: BREAST CANCER FEMALE
     Dosage: UNK
     Dates: end: 20191021

REACTIONS (17)
  - Acute respiratory failure [Fatal]
  - Hypoxia [Unknown]
  - COVID-19 [Unknown]
  - Transaminases increased [Unknown]
  - Neoplasm progression [Unknown]
  - Metabolic encephalopathy [Unknown]
  - Acute kidney injury [Unknown]
  - Pyrexia [Unknown]
  - Pneumonia aspiration [Unknown]
  - Respiratory distress [Unknown]
  - Cellulitis [Unknown]
  - Shock [Unknown]
  - Lymphoedema [Unknown]
  - Sepsis [Unknown]
  - Septic shock [Unknown]
  - Renal tubular necrosis [Unknown]
  - Metabolic acidosis [Unknown]

NARRATIVE: CASE EVENT DATE: 20200331
